FAERS Safety Report 4658779-X (Version None)
Quarter: 2005Q2

REPORT INFORMATION
  Report Type: 
  Country: None (occurrence: None)
  Receive Date: 20050509
  Receipt Date: 20050430
  Transmission Date: 20051028
  Serious: Yes (Death, Hospitalization, Other)
  Sender: FDA-Public Use
  Company Number: 2005059829

PATIENT
  Age: 88 Year
  Sex: Female

DRUGS (2)
  1. CITALOR              (ATORVASTATIN) [Suspect]
     Indication: DYSLIPIDAEMIA
     Dosage: 10 MG (10 MG, 1 IN 1 D), ORAL
     Route: 048
     Dates: start: 20000401, end: 20050301
  2. ACETYLSALICYLIC ACID [Concomitant]

REACTIONS (10)
  - CARDIAC DISORDER [None]
  - FALL [None]
  - FEMUR FRACTURE [None]
  - INFECTION [None]
  - PARALYSIS [None]
  - PNEUMONIA [None]
  - POST PROCEDURAL COMPLICATION [None]
  - RENAL DISORDER [None]
  - SEPSIS [None]
  - THROMBOSIS [None]
